FAERS Safety Report 20942269 (Version 4)
Quarter: 2022Q3

REPORT INFORMATION
  Report Type: Spontaneous
  Country: US (occurrence: US)
  Receive Date: 20220610
  Receipt Date: 20220824
  Transmission Date: 20221027
  Serious: Yes (Other)
  Sender: FDA-Public Use
  Company Number: US-ORPHANEU-2022002381

PATIENT

DRUGS (16)
  1. ISTURISA [Suspect]
     Active Substance: OSILODROSTAT PHOSPHATE
     Indication: Cushing^s syndrome
     Dosage: 1 MILLIGRAM, BID
     Route: 048
     Dates: start: 20220517, end: 202205
  2. ISTURISA [Suspect]
     Active Substance: OSILODROSTAT PHOSPHATE
     Dosage: 1 MILLIGRAM, QD
     Route: 048
     Dates: start: 202205, end: 202205
  3. ISTURISA [Suspect]
     Active Substance: OSILODROSTAT PHOSPHATE
     Dosage: 1 MILLIGRAM, BID
     Route: 048
     Dates: start: 20220526, end: 20220531
  4. CANDESARTAN [Concomitant]
     Active Substance: CANDESARTAN
     Indication: Hypertension
     Dosage: 8 MILLIGRAM, ONCE DAILY
     Route: 048
     Dates: start: 20210101
  5. CANDESARTAN [Concomitant]
     Active Substance: CANDESARTAN
     Dosage: 40 MILLIGRAM
  6. DEXTROAMPHETAMINE [Concomitant]
     Active Substance: DEXTROAMPHETAMINE
     Indication: Product used for unknown indication
     Dosage: 15 MILLIGRAM (EXTENDED RELEASE)
  7. PROBIOTIC CHEWABLE [Concomitant]
     Indication: Product used for unknown indication
     Dosage: UNK
     Route: 048
  8. CYCLOBENZAPRINE [Concomitant]
     Active Substance: CYCLOBENZAPRINE
     Indication: Muscle spasms
     Dosage: 1 0 MILLIGRAM ONE TABLET ONCE DAILY AT NIGHT AS NEEDED
     Route: 048
  9. BUDESONIDE [Concomitant]
     Active Substance: BUDESONIDE
     Indication: Product used for unknown indication
     Dosage: 1`60-4.5 MICROGRAM/ACT
     Dates: start: 20210202
  10. NURTEC ODT [Concomitant]
     Active Substance: RIMEGEPANT SULFATE
     Indication: Product used for unknown indication
     Dosage: UNK
  11. TOPROL XL [Concomitant]
     Active Substance: METOPROLOL SUCCINATE
     Indication: Hypertension
     Dosage: 50 MILLIGRAM, ONCE DAILY
     Dates: start: 20201229
  12. ADDERALL [Concomitant]
     Active Substance: AMPHETAMINE ASPARTATE\AMPHETAMINE SULFATE\DEXTROAMPHETAMINE SACCHARATE\DEXTROAMPHETAMINE SULFATE
     Indication: Product used for unknown indication
     Dosage: 15 MILLIGRAM1 CAPSULE EVERY MORNING ( MAXIMUM DAILY AMOUNT 15 MG)
     Route: 048
  13. FLUTICASONE PROPIONATE [Concomitant]
     Active Substance: FLUTICASONE PROPIONATE
     Indication: Product used for unknown indication
     Dosage: 1 SPRAY
     Route: 045
  14. CLARITIN-D NOS [Concomitant]
     Active Substance: LORATADINE\PSEUDOEPHEDRINE SULFATE
     Indication: Product used for unknown indication
     Dosage: 10-240 MILLIGRAM PER TABLET DAILY
     Route: 048
     Dates: start: 20191122
  15. TRI-SPRINTEC [Concomitant]
     Active Substance: ETHINYL ESTRADIOL\NORGESTIMATE
     Indication: Product used for unknown indication
     Dosage: 0.18/0.215/0.25 MG- 35 MICROGRAM TABLETS
     Route: 048
     Dates: start: 20200903
  16. TRAZODONE [Concomitant]
     Active Substance: TRAZODONE HYDROCHLORIDE
     Indication: Product used for unknown indication
     Dosage: 100 MILLIGRAM NIGHTLY FOR 30 DAYS
     Route: 048
     Dates: start: 20220714, end: 20220813

REACTIONS (13)
  - Adrenal insufficiency [Not Recovered/Not Resolved]
  - Asthenia [Not Recovered/Not Resolved]
  - Dizziness [Not Recovered/Not Resolved]
  - Depression [Not Recovered/Not Resolved]
  - Feeling abnormal [Recovering/Resolving]
  - Cold sweat [Recovering/Resolving]
  - Myalgia [Recovering/Resolving]
  - Affect lability [Recovering/Resolving]
  - Blood pressure increased [Recovering/Resolving]
  - Tachycardia [Not Recovered/Not Resolved]
  - Flushing [Not Recovered/Not Resolved]
  - Off label use [Recovered/Resolved]
  - Off label use [Recovered/Resolved]

NARRATIVE: CASE EVENT DATE: 20220101
